FAERS Safety Report 6676395-5 (Version None)
Quarter: 2010Q2

REPORT INFORMATION
  Report Type: 
  Country: None (occurrence: None)
  Receive Date: 20100412
  Receipt Date: 20100330
  Transmission Date: 20101027
  Serious: Yes (Other)
  Sender: FDA-Public Use
  Company Number: PHHY2010US19061

PATIENT
  Sex: Female

DRUGS (2)
  1. ZOMETA [Suspect]
     Indication: MULTIPLE MYELOMA
     Dosage: 4MG EVERY 4 WEEKS
     Route: 042
  2. ZOMETA [Suspect]
     Dosage: 3 MG FOR 4 WEEKS
     Route: 042

REACTIONS (2)
  - OSTEONECROSIS [None]
  - TONGUE DISORDER [None]
